FAERS Safety Report 13438806 (Version 2)
Quarter: 2017Q3

REPORT INFORMATION
  Report Type: Report from Study
  Country: FR (occurrence: FR)
  Receive Date: 20170412
  Receipt Date: 20170702
  Transmission Date: 20171127
  Serious: Yes (Other)
  Sender: FDA-Public Use
  Company Number: PHHY2017FR053441

PATIENT
  Age: 60 Year
  Sex: Female
  Weight: 55 kg

DRUGS (1)
  1. ZARZIO [Suspect]
     Active Substance: FILGRASTIM
     Indication: PRODUCT USED FOR UNKNOWN INDICATION
     Dosage: 30MU/DAY (THREE DAYS AFTER DAY 1 AND FIVE DAYS AFTER DAY 8)
     Route: 058
     Dates: start: 20160830, end: 20160910

REACTIONS (3)
  - Spinal pain [Recovered/Resolved]
  - Neck pain [Recovered/Resolved]
  - Paralysis [Recovering/Resolving]

NARRATIVE: CASE EVENT DATE: 20160901
